FAERS Safety Report 7920696-7 (Version None)
Quarter: 2011Q4

REPORT INFORMATION
  Report Type: 
  Country: None (occurrence: None)
  Receive Date: 20111117
  Receipt Date: 20111101
  Transmission Date: 20120403
  Serious: No
  Sender: FDA-Public Use
  Company Number: US-BAYER-2011-106232

PATIENT
  Sex: Male

DRUGS (2)
  1. BETASERON [Suspect]
     Indication: MULTIPLE SCLEROSIS
     Dosage: UNK
     Route: 058
  2. ANALGESICS [Concomitant]

REACTIONS (11)
  - FEELING ABNORMAL [None]
  - ARTHRALGIA [None]
  - NERVOUSNESS [None]
  - MEMORY IMPAIRMENT [None]
  - TREMOR [None]
  - INCREASED APPETITE [None]
  - FATIGUE [None]
  - DYSARTHRIA [None]
  - CONFUSIONAL STATE [None]
  - HEADACHE [None]
  - EPICONDYLITIS [None]
